FAERS Safety Report 9846294 (Version 1)
Quarter: 2013Q4

REPORT INFORMATION
  Report Type: Spontaneous
  Country: US (occurrence: None)
  Receive Date: 20131224
  Receipt Date: 20131224
  Transmission Date: 20140711
  Serious: Yes (Other)
  Sender: FDA-Public Use
  Company Number: PHEH2013US020917

PATIENT
  Age: 45 Year
  Sex: Female
  Weight: 67.1 kg

DRUGS (5)
  1. GILENYA (FINGOLIMOD) CAPSULE [Suspect]
     Indication: MULTIPLE SCLEROSIS
     Route: 048
     Dates: start: 201207
  2. CELEXA (CITALOPRAM HYDROBROMIDE) [Suspect]
  3. METHYL PHENIDATE [Concomitant]
  4. WELLBUTRIN SR [Concomitant]
  5. HYDROCODONE [Concomitant]

REACTIONS (4)
  - Body mass index increased [None]
  - Weight increased [None]
  - Blood cholesterol increased [None]
  - Lymphocyte count decreased [None]
